FAERS Safety Report 8731355 (Version 2)
Quarter: 2012Q4

REPORT INFORMATION
  Report Type: 
  Country: GB (occurrence: GB)
  Receive Date: 20120820
  Receipt Date: 20120917
  Transmission Date: 20130627
  Serious: Yes (Other)
  Sender: FDA-Public Use
  Company Number: GB-JNJFOC-20120805189

PATIENT
  Age: 30 Year
  Sex: Female
  Weight: 62 kg

DRUGS (3)
  1. CETIRIZINE HYDROCHLORIDE [Suspect]
     Route: 065
  2. CETIRIZINE HYDROCHLORIDE [Suspect]
     Indication: SEASONAL ALLERGY
     Route: 065
     Dates: start: 20120712, end: 20120712
  3. MICROGYNON [Concomitant]
     Route: 065

REACTIONS (4)
  - Arthralgia [Recovered/Resolved]
  - Emotional disorder [Recovered/Resolved]
  - Hypotonia [Recovered/Resolved]
  - Palpitations [Recovered/Resolved]
